FAERS Safety Report 15646601 (Version 1)
Quarter: 2018Q4

REPORT INFORMATION
  Report Type: Report from Study
  Country: None (occurrence: US)
  Receive Date: 20181122
  Receipt Date: 20181122
  Transmission Date: 20190205
  Serious: Yes (Hospitalization, Other)
  Sender: FDA-Public Use
  Company Number: US-ABBVIE-18K-163-2560079-00

PATIENT
  Age: 54 Year
  Sex: Female

DRUGS (1)
  1. HUMIRA [Suspect]
     Active Substance: ADALIMUMAB
     Indication: PSORIATIC ARTHROPATHY
     Route: 058
     Dates: start: 20170526, end: 20181004

REACTIONS (5)
  - Amnesia [Unknown]
  - Coma [Recovered/Resolved]
  - Motor dysfunction [Unknown]
  - Pneumonia legionella [Recovering/Resolving]
  - Immunodeficiency [Unknown]

NARRATIVE: CASE EVENT DATE: 2018
